FAERS Safety Report 9530885 (Version 1)
Quarter: 2013Q2

REPORT INFORMATION
  Report Type: Spontaneous
  Country: US (occurrence: None)
  Receive Date: 20130416
  Receipt Date: 20130416
  Transmission Date: 20140414
  Serious: Yes (Other)
  Sender: FDA-Public Use
  Company Number: 2012034301

PATIENT
  Age: 77 Year
  Sex: Female

DRUGS (24)
  1. HIZENTRA (IMMUNOGLOBULIN HUMAN NORMAL) [Suspect]
     Indication: IMMUNODEFICIENCY COMMON VARIABLE
     Dosage: 6 G 1X/WEEK, 2 GM ON 2 SITES OVER 1 TO 2 HOURS SUBCUTANEOUS
     Dates: start: 20121217, end: 20121217
  2. SINGULAIR [Concomitant]
  3. ZOLOFT (SERTRALINE) [Concomitant]
  4. SYNTHROID (LEVOTHYROXINE SODIUM) [Concomitant]
  5. LOVENOX (ENOXAPARIN SODIUM) [Concomitant]
  6. TRAMADOL [Concomitant]
  7. ATENOLOL [Concomitant]
  8. NITROGLYCERIN (GLYCERYL TRINITRATE) [Concomitant]
  9. ZYRTEC (CETIRIZINE HYDROCHLORIDE) [Concomitant]
  10. FLEXERIL (CYCLOBENZAPRINE HYDROCHLORIDE) [Concomitant]
  11. OCUVITE [Concomitant]
  12. CULTURELLE (LACTOBACILLUS ACIDOPHILUS) [Concomitant]
  13. PREVACID (LANSOPRAZOLE) [Concomitant]
  14. LASIX (FUROSEMIDE) [Concomitant]
  15. LEVALBUTEROL (LEVOSALBUTAMOL HYDROCHLORIDE) [Concomitant]
  16. TYLENOL (PARACETAMOL) [Concomitant]
  17. PROAIR (PROCATEROL HYDROCHLORIDE) [Concomitant]
  18. VITAMIN D (ERGOCALCIFEROL) [Concomitant]
  19. XOLAIR (OMALIZUMAB) [Concomitant]
  20. ALVESCO (CICLESONIDE) [Concomitant]
  21. XOPENEX (LEVOSALBUTAMOL) [Concomitant]
  22. DIPHENHYDRAMINE [Concomitant]
  23. EPIPEN (EPINEPHRINE) [Concomitant]
  24. LMX (LIDOCAINE) [Concomitant]

REACTIONS (1)
  - Rash pruritic [None]
